FAERS Safety Report 8537115-2 (Version None)
Quarter: 2012Q3

REPORT INFORMATION
  Report Type: 
  Country: None (occurrence: None)
  Receive Date: 20120725
  Receipt Date: 20120720
  Transmission Date: 20120928
  Serious: Yes (Death)
  Sender: FDA-Public Use
  Company Number: JP-PFIZER INC-2012175559

PATIENT
  Age: 72 Year
  Sex: Female

DRUGS (1)
  1. XALKORI [Suspect]
     Indication: NON-SMALL CELL LUNG CANCER
     Dosage: 250 MG, SINGLE
     Route: 048
     Dates: start: 20120719, end: 20120719

REACTIONS (1)
  - DEATH [None]
